FAERS Safety Report 25605318 (Version 2)
Quarter: 2025Q3

REPORT INFORMATION
  Report Type: Report from Study
  Country: CA (occurrence: CA)
  Receive Date: 20250725
  Receipt Date: 20250801
  Transmission Date: 20251021
  Serious: Yes (Other)
  Sender: TAKEDA
  Company Number: CA-TAKEDA-2024TUS070448

PATIENT
  Age: 74 Year
  Sex: Female

DRUGS (13)
  1. VEDOLIZUMAB [Suspect]
     Active Substance: VEDOLIZUMAB
     Indication: Colitis microscopic
  2. VEDOLIZUMAB [Suspect]
     Active Substance: VEDOLIZUMAB
     Dosage: 300 MILLIGRAM, Q4WEEKS
     Dates: start: 20241001
  3. VEDOLIZUMAB [Suspect]
     Active Substance: VEDOLIZUMAB
     Indication: Colitis microscopic
     Dosage: 108 MILLIGRAM, Q2WEEKS
     Dates: start: 202501
  4. BUDESONIDE [Concomitant]
     Active Substance: BUDESONIDE
  5. ENTOCORT [Concomitant]
     Active Substance: BUDESONIDE
  6. Cortiment [Concomitant]
  7. PANTOPRAZOLE [Concomitant]
     Active Substance: PANTOPRAZOLE
  8. CALCIUM [Concomitant]
     Active Substance: CALCIUM
  9. B12 [Concomitant]
  10. VITAMIN D NOS [Concomitant]
     Active Substance: CHOLECALCIFEROL\ERGOCALCIFEROL
  11. MAGNESIUM [Concomitant]
     Active Substance: MAGNESIUM
  12. MELATONIN [Concomitant]
     Active Substance: MELATONIN
  13. OMEGA 3 [Concomitant]
     Active Substance: CAPSAICIN

REACTIONS (3)
  - Colitis ulcerative [Not Recovered/Not Resolved]
  - Therapeutic reaction time decreased [Not Recovered/Not Resolved]
  - Off label use [Unknown]

NARRATIVE: CASE EVENT DATE: 20240528
